FAERS Safety Report 4530306-7 (Version None)
Quarter: 2004Q4

REPORT INFORMATION
  Report Type: 
  Country: None (occurrence: None)
  Receive Date: 20041217
  Receipt Date: 20020624
  Transmission Date: 20050328
  Serious: Yes (Hospitalization)
  Sender: FDA-Public Use
  Company Number: FR-ROCHE-315802

PATIENT
  Age: 39 Year
  Sex: Male

DRUGS (8)
  1. MYCOPHENOLATE MOFETIL [Suspect]
     Route: 048
     Dates: start: 20010605
  2. CELLCEPT [Suspect]
     Route: 065
  3. SANDIMMUNE [Suspect]
     Dosage: FREQUENCY REPORTED AS 1.
     Route: 048
  4. PREDNISONE TAB [Suspect]
     Route: 048
     Dates: start: 19920721
  5. RAPAMUNE [Suspect]
     Route: 048
     Dates: start: 20030224, end: 20041121
  6. PREDNISONE TAB [Suspect]
     Route: 048
  7. ASPEGIC 325 [Concomitant]
     Route: 048
  8. TRIATEC [Concomitant]
     Route: 048

REACTIONS (3)
  - EMBOLISM [None]
  - LUNG DISORDER [None]
  - RENAL IMPAIRMENT [None]
